FAERS Safety Report 12404826 (Version 2)
Quarter: 2016Q2

REPORT INFORMATION
  Report Type: Report from Study
  Country: DE (occurrence: DE)
  Receive Date: 20160525
  Receipt Date: 20160601
  Transmission Date: 20160815
  Serious: Yes (Other)
  Sender: FDA-Public Use
  Company Number: DE-TEVA-661954GER

PATIENT
  Age: 58 Year
  Sex: Female

DRUGS (3)
  1. DACLATASVIR. [Concomitant]
     Active Substance: DACLATASVIR
     Indication: HEPATIC CIRRHOSIS
     Dosage: 60 MG
     Route: 048
  2. SOFOSBUVIR [Suspect]
     Active Substance: SOFOSBUVIR
     Indication: HEPATIC CIRRHOSIS
     Dosage: 400MG
     Route: 048
  3. RIBAVIRIN. [Suspect]
     Active Substance: RIBAVIRIN
     Indication: HEPATIC CIRRHOSIS
     Dosage: 1200 MILLIGRAM DAILY;
     Route: 048

REACTIONS (1)
  - Lactic acidosis [Recovering/Resolving]
